FAERS Safety Report 4381233-X (Version None)
Quarter: 2004Q2

REPORT INFORMATION
  Report Type: 
  Country: None (occurrence: None)
  Receive Date: 20040616
  Receipt Date: 20040608
  Transmission Date: 20050107
  Serious: Yes (Other)
  Sender: FDA-Public Use
  Company Number: TPA2004A00709

PATIENT
  Sex: Male

DRUGS (1)
  1. ACTOS [Suspect]
     Dosage: 30 MG, 1 IN 1 D, PER ORAL; 45 MG, 1 IN 1 D, PER ORAL
     Route: 048
     Dates: start: 20030608

REACTIONS (1)
  - HEPATOMEGALY [None]
